FAERS Safety Report 4642140-8 (Version None)
Quarter: 2005Q2

REPORT INFORMATION
  Report Type: 
  Country: None (occurrence: None)
  Receive Date: 20050421
  Receipt Date: 20050421
  Transmission Date: 20051028
  Serious: No
  Sender: FDA-Public Use
  Company Number: None

PATIENT
  Age: 86 Year
  Sex: Male
  Weight: 77 kg

DRUGS (1)
  1. WARFARIN SODIUM [Suspect]
     Indication: ATRIAL FIBRILLATION
     Dosage: 3 MG PO QPM
     Route: 048
     Dates: start: 20040721

REACTIONS (2)
  - DIARRHOEA [None]
  - INTERNATIONAL NORMALISED RATIO INCREASED [None]
